FAERS Safety Report 4279681-1 (Version None)
Quarter: 2004Q1

REPORT INFORMATION
  Report Type: 
  Country: None (occurrence: None)
  Receive Date: 20040127
  Receipt Date: 20031120
  Transmission Date: 20041129
  Serious: Yes (Life-Threatening)
  Sender: FDA-Public Use
  Company Number: PHEH2003US10736

PATIENT
  Age: 84 Year
  Sex: Female
  Weight: 28 kg

DRUGS (7)
  1. GLEEVEC [Suspect]
     Indication: ACUTE LYMPHOCYTIC LEUKAEMIA
     Dosage: 200 MG, QHS
     Route: 048
     Dates: start: 20031105, end: 20031115
  2. VANCOMYCIN [Concomitant]
  3. AMPHOTERICIN B [Concomitant]
  4. MERCAPTOPURINE [Concomitant]
  5. SPIRONOLACTONE [Concomitant]
  6. MIRALAX [Concomitant]
  7. GRANSITRIM [Concomitant]

REACTIONS (6)
  - CHILLS [None]
  - HYPERHIDROSIS [None]
  - OEDEMA [None]
  - TACHYCARDIA [None]
  - VENTRICULAR EXTRASYSTOLES [None]
  - VENTRICULAR TACHYCARDIA [None]
